FAERS Safety Report 4380462-9 (Version None)
Quarter: 2004Q2

REPORT INFORMATION
  Report Type: 
  Country: None (occurrence: None)
  Receive Date: 20040618
  Receipt Date: 20040412
  Transmission Date: 20050107
  Serious: Yes (Life-Threatening, Other)
  Sender: FDA-Public Use
  Company Number: PHEH2004US04133

PATIENT
  Age: 69 Year
  Sex: Female

DRUGS (10)
  1. ZELNORM [Suspect]
     Indication: IRRITABLE BOWEL SYNDROME
     Dosage: 6 MG, BID
     Route: 048
     Dates: start: 20040119, end: 20040128
  2. AMARYL [Concomitant]
     Indication: DIABETES MELLITUS NON-INSULIN-DEPENDENT
     Dosage: .5 MG, QD
     Route: 048
  3. AMITRIPTYLINE HCL [Concomitant]
     Indication: RESTLESS LEGS SYNDROME
     Dosage: 10 MG, QHS
     Route: 048
  4. ESTRADIOL [Concomitant]
     Indication: BLOOD OESTROGEN
     Dosage: .05 MG, QW
  5. ISOSORBIDE MONONITRATE [Concomitant]
     Indication: ARTERIAL SPASM
     Dosage: 60 MG, QD
     Route: 048
  6. K-DUR 10 [Concomitant]
     Indication: BLOOD POTASSIUM
     Dosage: 20 MG, QD
  7. LEVOXYL [Concomitant]
     Indication: HYPOTHYROIDISM
     Dosage: .05 MG, UNK
  8. LIPITOR [Concomitant]
     Indication: BLOOD CHOLESTEROL INCREASED
     Dosage: 10 MG, QHS
  9. NEXIUM [Concomitant]
     Indication: GASTROOESOPHAGEAL REFLUX DISEASE
     Dosage: 40 MG, QD
  10. NIFEDIPINE [Concomitant]
     Indication: ARTERIAL SPASM
     Dosage: 60 MG, QD

REACTIONS (1)
  - LOSS OF CONSCIOUSNESS [None]
